FAERS Safety Report 14669225 (Version 1)
Quarter: 2018Q1

REPORT INFORMATION
  Report Type: Spontaneous
  Country: IT (occurrence: IT)
  Receive Date: 20180322
  Receipt Date: 20180322
  Transmission Date: 20180509
  Serious: Yes (Other)
  Sender: FDA-Public Use
  Company Number: IT-THROMBOGENICS INC-SPO-2018-2516

PATIENT
  Age: 59 Year
  Sex: Male

DRUGS (1)
  1. JETREA [Suspect]
     Active Substance: OCRIPLASMIN
     Indication: VITREOMACULAR INTERFACE ABNORMAL
     Dosage: 0.125 MG, ONE TIME DOSE
     Route: 031
     Dates: start: 20150327, end: 20150327

REACTIONS (1)
  - Optical coherence tomography abnormal [Recovered/Resolved]

NARRATIVE: CASE EVENT DATE: 20150329
